FAERS Safety Report 19813428 (Version 1)
Quarter: 2021Q3

REPORT INFORMATION
  Report Type: Spontaneous
  Country: US (occurrence: US)
  Receive Date: 20210907
  Receipt Date: 20210907
  Transmission Date: 20211014
  Serious: No
  Sender: FDA-Public Use
  Company Number: None

PATIENT
  Age: 67 Year
  Sex: Male

DRUGS (1)
  1. LASMIDITAN (LASMIDITAN 50MG TAB) [Suspect]
     Active Substance: LASMIDITAN
     Indication: PAIN
     Route: 048
     Dates: start: 20210419, end: 20210601

REACTIONS (3)
  - Fatigue [None]
  - Nausea [None]
  - Vomiting [None]

NARRATIVE: CASE EVENT DATE: 20210601
